FAERS Safety Report 21336026 (Version 3)
Quarter: 2022Q4

REPORT INFORMATION
  Report Type: Spontaneous
  Country: ES (occurrence: ES)
  Receive Date: 20220915
  Receipt Date: 20221005
  Transmission Date: 20230112
  Serious: Yes (Other)
  Sender: FDA-Public Use
  Company Number: ES-GILEAD-2022-0597472

PATIENT
  Age: 57 Year
  Sex: Female
  Weight: 54 kg

DRUGS (6)
  1. HARVONI [Suspect]
     Active Substance: LEDIPASVIR\SOFOSBUVIR
     Indication: Chronic hepatitis C
     Dosage: 1 DOSAGE FORM
     Route: 065
     Dates: end: 201512
  2. DARUNAVIR [Concomitant]
     Active Substance: DARUNAVIR
  3. SULFAMETHOXAZOLE\TRIMETHOPRIM [Concomitant]
     Active Substance: SULFAMETHOXAZOLE\TRIMETHOPRIM
  4. EMTRICITABINE [Concomitant]
     Active Substance: EMTRICITABINE
  5. RITONAVIR [Concomitant]
     Active Substance: RITONAVIR
  6. TENOFOVIR [Concomitant]
     Active Substance: TENOFOVIR

REACTIONS (11)
  - Portal hypertension [Unknown]
  - Osteoporosis [Unknown]
  - Cervical dysplasia [Unknown]
  - Nervousness [Recovered/Resolved]
  - Anxiety [Recovered/Resolved]
  - Depressive symptom [Recovered/Resolved]
  - Crying [Recovered/Resolved]
  - Mood altered [Recovered/Resolved]
  - Sleep disorder [Unknown]
  - Initial insomnia [Unknown]
  - Diarrhoea [Unknown]

NARRATIVE: CASE EVENT DATE: 20151201
